FAERS Safety Report 11647000 (Version 1)
Quarter: 2015Q4

REPORT INFORMATION
  Report Type: Spontaneous
  Country: US (occurrence: US)
  Receive Date: 20151020
  Receipt Date: 20151020
  Transmission Date: 20160304
  Serious: Yes (Hospitalization, Other)
  Sender: FDA-Public Use
  Company Number: US-009507513-1510USA006883

PATIENT
  Sex: Male

DRUGS (5)
  1. VICTRELIS [Suspect]
     Active Substance: BOCEPREVIR
     Indication: HEPATITIS C
     Dosage: 800 MG, 3 IN 1 DAY
     Route: 048
     Dates: end: 20130324
  2. PEGASYS [Suspect]
     Active Substance: PEGINTERFERON ALFA-2A
     Indication: CHRONIC HEPATITIS C
     Dosage: 180 MICROGRAM, QW
     Route: 058
     Dates: end: 20130324
  3. PEGASYS [Suspect]
     Active Substance: PEGINTERFERON ALFA-2A
     Dosage: 150 MICROGRAM, QW
     Route: 058
     Dates: end: 20130324
  4. COPEGUS [Suspect]
     Active Substance: RIBAVIRIN
     Dosage: 400 MG Q AM AND 600 MG Q PM (ALSO REPORTED AS ^1000MG, 1 IN 1 DAY^)
     Route: 048
     Dates: end: 20130324
  5. COPEGUS [Suspect]
     Active Substance: RIBAVIRIN
     Indication: CHRONIC HEPATITIS C
     Dosage: 1500 MG, 1 IN 1 DAY
     Route: 048
     Dates: end: 20130324

REACTIONS (4)
  - Hypersensitivity [Unknown]
  - Infusion site infection [Recovering/Resolving]
  - Rash [Recovered/Resolved]
  - Sepsis [Recovering/Resolving]
